FAERS Safety Report 23232652 (Version 1)
Quarter: 2023Q4

REPORT INFORMATION
  Report Type: Spontaneous
  Country: SE (occurrence: SE)
  Receive Date: 20231128
  Receipt Date: 20231128
  Transmission Date: 20240109
  Serious: Yes (Hospitalization)
  Sender: FDA-Public Use
  Company Number: SE-SEMPA-2023-015759

PATIENT
  Age: 86 Year
  Sex: Male

DRUGS (5)
  1. CLOPIDOGREL [Suspect]
     Active Substance: CLOPIDOGREL BISULFATE
     Indication: Percutaneous coronary intervention
     Dosage: UNK
     Route: 065
     Dates: start: 202307, end: 20230927
  2. CLOPIDOGREL [Suspect]
     Active Substance: CLOPIDOGREL BISULFATE
     Indication: Coronary arterial stent insertion
  3. XARELTO [Suspect]
     Active Substance: RIVAROXABAN
     Indication: Percutaneous coronary intervention
     Dosage: UNK
     Route: 065
     Dates: start: 202307
  4. XARELTO [Suspect]
     Active Substance: RIVAROXABAN
     Indication: Prophylaxis
  5. XARELTO [Suspect]
     Active Substance: RIVAROXABAN
     Indication: Coronary arterial stent insertion

REACTIONS (1)
  - Haemoptysis [Recovered/Resolved]

NARRATIVE: CASE EVENT DATE: 20230926
